FAERS Safety Report 10170076 (Version 3)
Quarter: 2015Q4

REPORT INFORMATION
  Report Type: Spontaneous
  Country: GB (occurrence: KW)
  Receive Date: 20140513
  Receipt Date: 20151209
  Transmission Date: 20160304
  Serious: Yes (Other)
  Sender: FDA-Public Use
  Company Number: KW-MYLANLABS-2014S1010048

PATIENT

DRUGS (7)
  1. RANITIDINE [Concomitant]
     Active Substance: RANITIDINE\RANITIDINE HYDROCHLORIDE
     Dosage: 75 MG,QD
  2. MERCAPTAMINE [Suspect]
     Active Substance: CYSTEAMINE
     Dosage: 300 MG,QID
     Dates: start: 201307, end: 20140103
  3. ALFACALCIDOL [Concomitant]
     Active Substance: ALFACALCIDOL
     Dosage: 1 MG,QD
  4. MERCAPTAMINE [Suspect]
     Active Substance: CYSTEAMINE
     Indication: CYSTINOSIS
     Dosage: 300 MG,QID
     Dates: start: 201307
  5. MERCAPTAMINE [Suspect]
     Active Substance: CYSTEAMINE
     Dosage: UNK, QD
     Dates: start: 20140104
  6. PHOSPHATE SANDOZ [Concomitant]
     Dosage: 16 MMOL,QD
  7. INDOMETACINE [Concomitant]
     Active Substance: INDOMETHACIN
     Dosage: 28 MG,QD

REACTIONS (3)
  - White blood cell disorder [Recovered/Resolved with Sequelae]
  - Incorrect route of drug administration [Not Recovered/Not Resolved]
  - Drug ineffective [Recovered/Resolved with Sequelae]

NARRATIVE: CASE EVENT DATE: 20140103
